FAERS Safety Report 10885465 (Version 1)
Quarter: 2015Q1

REPORT INFORMATION
  Report Type: Spontaneous
  Country: US (occurrence: None)
  Receive Date: 20150227
  Receipt Date: 20150227
  Transmission Date: 20150721
  Serious: Yes (Hospitalization)
  Sender: FDA-Public Use
  Company Number: SOM-2908-AE

PATIENT
  Age: 51 Year
  Sex: Female

DRUGS (1)
  1. ISOMETHEPTENE MUCATE, DICHLORALPHENAZONE, AND ACETAMINOPHEN [Suspect]
     Active Substance: ACETAMINOPHEN\DICHLORALPHENAZONE\ISOMETHEPTENE MUCATE
     Indication: MIGRAINE
     Dosage: 1 CAP
     Route: 048
     Dates: start: 201412, end: 201501

REACTIONS (1)
  - Tachycardia [None]

NARRATIVE: CASE EVENT DATE: 20150119
